FAERS Safety Report 10757474 (Version 1)
Quarter: 2015Q1

REPORT INFORMATION
  Report Type: Spontaneous
  Country: US (occurrence: None)
  Receive Date: 20150202
  Receipt Date: 20150202
  Transmission Date: 20150721
  Serious: Yes (Other)
  Sender: FDA-Public Use
  Company Number: None

PATIENT
  Age: 70 Year
  Sex: Female
  Weight: 68.49 kg

DRUGS (9)
  1. LEVOFLAXIN [Concomitant]
     Active Substance: LEVOFLOXACIN
  2. VITAMIN B [Concomitant]
     Active Substance: VITAMIN B
  3. CLONAZEPAM. [Concomitant]
     Active Substance: CLONAZEPAM
  4. FIBER [Concomitant]
     Active Substance: PSYLLIUM HUSK
  5. SYNTHROID [Concomitant]
     Active Substance: LEVOTHYROXINE SODIUM
  6. VITAMIN E [Concomitant]
     Active Substance: .ALPHA.-TOCOPHEROL
  7. VITAMIN D3 [Concomitant]
     Active Substance: CHOLECALCIFEROL
  8. PROLIA [Suspect]
     Active Substance: DENOSUMAB
     Dosage: EVERY 6 MONTHS
  9. CALCIUM [Concomitant]
     Active Substance: CALCIUM

REACTIONS (11)
  - Joint swelling [None]
  - Contusion [None]
  - Myalgia [None]
  - Pain in jaw [None]
  - Activities of daily living impaired [None]
  - Gait disturbance [None]
  - Skin discolouration [None]
  - Arthralgia [None]
  - Bone pain [None]
  - Pain in extremity [None]
  - Exercise tolerance decreased [None]

NARRATIVE: CASE EVENT DATE: 20140512
